FAERS Safety Report 6215458-5 (Version None)
Quarter: 2009Q2

REPORT INFORMATION
  Report Type: 
  Country: None (occurrence: None)
  Receive Date: 20090604
  Receipt Date: 20090529
  Transmission Date: 20091009
  Serious: Yes (Hospitalization, Other)
  Sender: FDA-Public Use
  Company Number: KR-BAUSCH-2009BL002636

PATIENT
  Age: 59 Year
  Sex: Female

DRUGS (11)
  1. CIPROFLOXACIN [Suspect]
     Indication: RENAL ABSCESS
     Route: 048
     Dates: start: 20070108, end: 20070112
  2. CIPROFLOXACIN [Suspect]
     Route: 042
     Dates: start: 20070113, end: 20070122
  3. CIPROFLOXACIN [Suspect]
     Route: 048
     Dates: start: 20070123, end: 20070128
  4. CIPROFLOXACIN [Suspect]
     Route: 042
     Dates: start: 20070129, end: 20070131
  5. LAMIVUDINE [Concomitant]
     Indication: ASCITES
  6. SPIRONOLACTONE [Concomitant]
     Indication: ASCITES
  7. FUROSEMIDE [Concomitant]
     Indication: ASCITES
  8. LACTULOSE [Concomitant]
     Indication: CONSTIPATION
  9. METRONIDAZOLE [Concomitant]
     Route: 042
     Dates: start: 20070113, end: 20070122
  10. METRONIDAZOLE [Concomitant]
     Route: 048
     Dates: start: 20070123, end: 20070128
  11. METRONIDAZOLE [Concomitant]
     Route: 042
     Dates: start: 20070129, end: 20070131

REACTIONS (5)
  - ARTERIOVENOUS FISTULA [None]
  - BALLISMUS [None]
  - CONTUSION [None]
  - CORONARY ARTERY DISEASE [None]
  - INJURY [None]
